FAERS Safety Report 4458158-4 (Version None)
Quarter: 2004Q3

REPORT INFORMATION
  Report Type: 
  Country: None (occurrence: None)
  Receive Date: 20040924
  Receipt Date: 20030605
  Transmission Date: 20050211
  Serious: Yes (Hospitalization, Disabling)
  Sender: FDA-Public Use
  Company Number: US-MERCK-0306USA00631

PATIENT
  Age: 35 Year
  Sex: Male
  Weight: 122 kg

DRUGS (22)
  1. NORCO [Concomitant]
     Route: 065
  2. ALLOPURINOL [Concomitant]
     Route: 065
  3. XANAX [Concomitant]
     Route: 065
     Dates: start: 20010515
  4. ASPIRIN [Concomitant]
     Route: 065
  5. SOMA [Concomitant]
     Route: 065
  6. PLAVIX [Concomitant]
     Route: 065
  7. COLCHICINE [Concomitant]
     Route: 065
  8. DILTIAZEM HYDROCHLORIDE [Concomitant]
     Route: 065
  9. FOLIC ACID [Concomitant]
     Route: 065
  10. INDOCIN [Concomitant]
     Route: 048
  11. IMDUR [Concomitant]
     Route: 065
  12. LECITHIN AND PROTEIN (UNSPECIFIED) [Concomitant]
     Route: 065
  13. LEVOTHROID [Concomitant]
     Route: 065
  14. LEVOTHROID [Concomitant]
     Route: 065
     Dates: start: 20030408, end: 20030522
  15. LEVOTHROID [Concomitant]
     Route: 065
     Dates: start: 20030522
  16. LEVOTHROID [Concomitant]
     Route: 065
  17. TOPROL-XL [Concomitant]
     Route: 065
  18. NITRO-DUR [Concomitant]
     Route: 065
  19. VIOXX [Suspect]
     Route: 048
  20. ZOCOR [Concomitant]
     Route: 048
  21. DIOVAN [Concomitant]
     Route: 065
  22. DIOVAN [Concomitant]
     Route: 065
     Dates: start: 20010713, end: 20030522

REACTIONS (27)
  - ADVERSE EVENT [None]
  - ANGINA PECTORIS [None]
  - ANXIETY [None]
  - BLOOD CHOLESTEROL INCREASED [None]
  - BLOOD CREATINE PHOSPHOKINASE INCREASED [None]
  - BRONCHITIS [None]
  - CARDIAC FAILURE CONGESTIVE [None]
  - CORONARY ARTERY ATHEROSCLEROSIS [None]
  - CORONARY ARTERY DISEASE [None]
  - DEPRESSION [None]
  - DYSPNOEA [None]
  - FATIGUE [None]
  - FEELING ABNORMAL [None]
  - GASTROOESOPHAGEAL REFLUX DISEASE [None]
  - GOUTY ARTHRITIS [None]
  - INFLUENZA [None]
  - LIMB INJURY [None]
  - MALIGNANT HYPERTENSION [None]
  - MYOCARDIAL ISCHAEMIA [None]
  - NASAL DISCOMFORT [None]
  - OEDEMA PERIPHERAL [None]
  - PALPITATIONS [None]
  - RHINITIS ALLERGIC [None]
  - SKIN LESION [None]
  - SLEEP APNOEA SYNDROME [None]
  - TINNITUS [None]
  - UPPER RESPIRATORY TRACT INFECTION [None]
